FAERS Safety Report 4747128-4 (Version None)
Quarter: 2005Q3

REPORT INFORMATION
  Report Type: 
  Country: None (occurrence: None)
  Receive Date: 20050815
  Receipt Date: 20050804
  Transmission Date: 20060218
  Serious: Yes (Other)
  Sender: FDA-Public Use
  Company Number: 2005096856

PATIENT
  Age: 58 Year
  Sex: Female

DRUGS (6)
  1. LIPITOR [Suspect]
     Indication: HYPERLIPIDAEMIA
     Dosage: 40 MG (40 MG, 1 IN 1 D), ORAL
     Route: 048
     Dates: start: 20050101, end: 20050628
  2. ZYRTEC [Suspect]
     Indication: HYPERSENSITIVITY
     Dosage: 10 MG (1 IN 1 D), ORAL
     Route: 048
     Dates: start: 20050201
  3. ZETIA [Suspect]
     Indication: DYSLIPIDAEMIA
     Dates: start: 20050101
  4. CYMBALTA [Suspect]
     Indication: DEPRESSION
     Dosage: 60 MG (1 IN 1 D),
     Dates: start: 20050401
  5. PREVACID [Concomitant]
  6. PLAVIX [Concomitant]

REACTIONS (5)
  - DEPRESSION [None]
  - DYSLIPIDAEMIA [None]
  - HYPERSENSITIVITY [None]
  - MULTIPLE ALLERGIES [None]
  - RHABDOMYOLYSIS [None]
